FAERS Safety Report 9859162 (Version 1)
Quarter: 2014Q1

REPORT INFORMATION
  Report Type: Spontaneous
  Country: DE (occurrence: DE)
  Receive Date: 20140131
  Receipt Date: 20140131
  Transmission Date: 20141002
  Serious: Yes (Other)
  Sender: FDA-Public Use
  Company Number: PHHY2014DE009995

PATIENT
  Sex: Female

DRUGS (1)
  1. ONBREZ [Suspect]
     Dosage: UNK

REACTIONS (2)
  - Arrhythmia [Unknown]
  - Tachycardia [Unknown]
